APPROVED DRUG PRODUCT: TECHNELITE
Active Ingredient: TECHNETIUM TC-99M SODIUM PERTECHNETATE GENERATOR
Strength: 0.0083-2.7 CI/GENERATOR
Dosage Form/Route: SOLUTION;INTRAVENOUS
Application: N017771 | Product #001
Applicant: LANTHEUS MEDICAL IMAGING INC
Approved: Approved Prior to Jan 1, 1982 | RLD: No | RS: No | Type: DISCN